FAERS Safety Report 9223329 (Version 1)
Quarter: 2013Q2

REPORT INFORMATION
  Report Type: Spontaneous
  Country: ES (occurrence: ES)
  Receive Date: 20130410
  Receipt Date: 20130410
  Transmission Date: 20140414
  Serious: Yes (Life-Threatening, Hospitalization)
  Sender: FDA-Public Use
  Company Number: ES-GILEAD-2013-0073171

PATIENT
  Age: 46 Year
  Sex: Male

DRUGS (11)
  1. TRUVADA [Suspect]
     Indication: HIV INFECTION
     Route: 048
     Dates: start: 201209, end: 20130213
  2. PEGASYS [Suspect]
     Indication: HEPATITIS C
     Dosage: ON THURSDAYS
     Route: 058
     Dates: start: 201210, end: 20130213
  3. COPEGUS [Suspect]
     Indication: HEPATITIS C
     Route: 048
     Dates: start: 201210, end: 20130213
  4. INCIVO [Suspect]
     Indication: HEPATITIS C
     Route: 048
     Dates: start: 201210, end: 20130213
  5. ATAZANAVIR [Suspect]
     Indication: HIV INFECTION
     Route: 048
     Dates: start: 201209, end: 20130213
  6. RITONAVIR [Concomitant]
     Indication: HIV INFECTION
     Route: 048
     Dates: start: 201209
  7. METHADONE                          /00068902/ [Concomitant]
     Dosage: 110 MG, QD
     Route: 048
     Dates: start: 2011
  8. RETACRIT [Concomitant]
     Dosage: 30.000 UI ON MONDAYS
     Route: 058
     Dates: start: 2012
  9. CIPROFLOXACINE                     /00697201/ [Concomitant]
     Indication: CELLULITIS
  10. PIP/TAZO [Concomitant]
     Indication: ANTIBIOTIC THERAPY
  11. CLINDAMYCIN [Concomitant]
     Indication: ANTIBIOTIC THERAPY
     Dosage: UNK
     Dates: start: 20130220

REACTIONS (4)
  - Pancytopenia [Recovering/Resolving]
  - Ecthyma [Recovering/Resolving]
  - Staphylococcal infection [Recovering/Resolving]
  - Pyrexia [Recovered/Resolved]
